FAERS Safety Report 23766585 (Version 3)
Quarter: 2024Q2

REPORT INFORMATION
  Report Type: Spontaneous
  Country: CA (occurrence: CA)
  Receive Date: 20240422
  Receipt Date: 20240524
  Transmission Date: 20240716
  Serious: Yes (Hospitalization)
  Sender: FDA-Public Use
  Company Number: CA-CELLTRION INC.-2024CA009309

PATIENT

DRUGS (6)
  1. INFLECTRA [Suspect]
     Active Substance: INFLIXIMAB-DYYB
     Indication: Crohn^s disease
     Dosage: 1300 MG, EVERY 4 WEEKS
     Route: 042
     Dates: start: 20200224, end: 20221101
  2. INFLECTRA [Suspect]
     Active Substance: INFLIXIMAB-DYYB
     Dosage: 725 MG, EVERY 4 WEEKS
     Route: 042
     Dates: start: 20221129
  3. INFLECTRA [Suspect]
     Active Substance: INFLIXIMAB-DYYB
     Dosage: 725 MG, EVERY 4 WEEKS
     Route: 042
     Dates: start: 20240320
  4. INFLECTRA [Suspect]
     Active Substance: INFLIXIMAB-DYYB
     Dosage: 725 MG, EVERY 4 WEEKS (725 MG, AFTER 8 WEEKS)
     Route: 042
     Dates: start: 20240515
  5. VALPROATE SODIUM [Concomitant]
     Active Substance: VALPROATE SODIUM
     Dosage: 1 DF, DOSAGE INFO UNK
     Route: 065
  6. KEPPRA [Concomitant]
     Active Substance: LEVETIRACETAM
     Dosage: 1 DF, DOSAGE INFO UNK, DRUG ONGOING
     Route: 065

REACTIONS (1)
  - Gallbladder operation [Unknown]
